FAERS Safety Report 8186820-9 (Version None)
Quarter: 2012Q1

REPORT INFORMATION
  Report Type: 
  Country: None (occurrence: None)
  Receive Date: 20120306
  Receipt Date: 20120227
  Transmission Date: 20120608
  Serious: Yes (Other)
  Sender: FDA-Public Use
  Company Number: AU-B.I. PHARMACEUTICALS,INC./RIDGEFIELD-2012-AU-00379AU

PATIENT
  Sex: Male

DRUGS (9)
  1. AMIODARONE HCL [Concomitant]
     Indication: ATRIAL FIBRILLATION
  2. PANTOPRAZOLE [Concomitant]
     Dosage: 40 MG
  3. ACTONEL WITH CALCIUM (COPACKAGED) [Concomitant]
  4. FLECAINIDE ACETATE [Concomitant]
     Dosage: 250 MG
  5. PRADAXA [Suspect]
     Dosage: 110 MG
  6. XALATAN [Concomitant]
  7. NEXIUM [Concomitant]
     Dosage: 80 MG
  8. MAGNESIUM [Concomitant]
  9. NOTEN [Concomitant]
     Dosage: 25 MG

REACTIONS (2)
  - HEMIANOPIA HETERONYMOUS [None]
  - HAEMORRHAGE INTRACRANIAL [None]
